FAERS Safety Report 11681529 (Version 1)
Quarter: 2015Q4

REPORT INFORMATION
  Report Type: Spontaneous
  Country: CA (occurrence: CA)
  Receive Date: 20151029
  Receipt Date: 20151029
  Transmission Date: 20160304
  Serious: Yes (Other)
  Sender: FDA-Public Use
  Company Number: CA-FRESENIUS KABI-FK201505410

PATIENT
  Age: 22 Year
  Sex: Female
  Weight: 85 kg

DRUGS (2)
  1. ETOPOSIDE (MANUFACTURER UNKNOWN) [Suspect]
     Active Substance: ETOPOSIDE
     Indication: OVARIAN CANCER
     Route: 042
  2. BENADRYL [Concomitant]
     Active Substance: DIPHENHYDRAMINE HYDROCHLORIDE

REACTIONS (4)
  - Flushing [Recovered/Resolved]
  - Abdominal pain [Recovered/Resolved]
  - Nausea [Recovered/Resolved]
  - Chest discomfort [Recovered/Resolved]
